FAERS Safety Report 20850509 (Version 1)
Quarter: 2022Q2

REPORT INFORMATION
  Report Type: Spontaneous
  Country: GB (occurrence: GB)
  Receive Date: 20220519
  Receipt Date: 20220519
  Transmission Date: 20220721
  Serious: Yes (Other)
  Sender: FDA-Public Use
  Company Number: GB-MHRA-MED-202205111231272070-NUV5K

PATIENT
  Age: 65 Year
  Sex: Male
  Weight: 78 kg

DRUGS (2)
  1. INDAPAMIDE [Suspect]
     Active Substance: INDAPAMIDE
     Dosage: 2.5 MILLIGRAM, QD (2.5MG OM)
     Dates: start: 20220420, end: 20220429
  2. MESALAMINE [Concomitant]
     Active Substance: MESALAMINE
     Dosage: UNK

REACTIONS (3)
  - Erectile dysfunction [Recovered/Resolved]
  - Paraesthesia [Recovered/Resolved]
  - Lethargy [Recovered/Resolved]

NARRATIVE: CASE EVENT DATE: 20220420
